FAERS Safety Report 13783462 (Version 1)
Quarter: 2017Q3

REPORT INFORMATION
  Report Type: Spontaneous
  Country: CN (occurrence: CN)
  Receive Date: 20170724
  Receipt Date: 20170724
  Transmission Date: 20171127
  Serious: Yes (Hospitalization)
  Sender: FDA-Public Use
  Company Number: CN-BAYER-2017-141069

PATIENT
  Age: 78 Year
  Sex: Male
  Weight: 82 kg

DRUGS (12)
  1. ENALAPRIL [Suspect]
     Active Substance: ENALAPRIL
     Dosage: 10 MG, QD
  2. ADALAT [Suspect]
     Active Substance: NIFEDIPINE
     Dosage: 30 MG, QD
  3. ENALAPRIL [Suspect]
     Active Substance: ENALAPRIL
     Dosage: 10 MG, BID
  4. ENALAPRIL [Suspect]
     Active Substance: ENALAPRIL
     Dosage: 10 MG, BID
  5. SIMVASTATIN. [Concomitant]
     Active Substance: SIMVASTATIN
     Dosage: 20 MG, QD
  6. WARFARIN [Concomitant]
     Active Substance: WARFARIN
     Dosage: 2.5 MG, QD
  7. BISOPROLOL [Concomitant]
     Active Substance: BISOPROLOL
     Dosage: 1.25 MG, QD
  8. ARICEPT [Concomitant]
     Active Substance: DONEPEZIL HYDROCHLORIDE
     Indication: DEMENTIA
     Dosage: 5 MG, QD
  9. ADALAT [Suspect]
     Active Substance: NIFEDIPINE
     Dosage: 30 MG, QD
  10. SPIRONOLACTONE. [Concomitant]
     Active Substance: SPIRONOLACTONE
     Dosage: 20 MG, QD
  11. BAYASPIRIN 100 MG [Suspect]
     Active Substance: ASPIRIN
     Indication: PLATELET AGGREGATION INHIBITION
     Dosage: 100 MG, QD
  12. RESERPINE. [Concomitant]
     Active Substance: RESERPINE
     Dosage: 1 DF, QD

REACTIONS (12)
  - Rales [Recovering/Resolving]
  - Dyspnoea [Recovered/Resolved]
  - Oedema peripheral [None]
  - Hypertensive heart disease [None]
  - Chest discomfort [Recovering/Resolving]
  - Heart rate abnormal [Recovered/Resolved]
  - Oedema [Recovered/Resolved]
  - Atrial fibrillation [Not Recovered/Not Resolved]
  - Oedema peripheral [Recovered/Resolved]
  - Oedema peripheral [Recovered/Resolved]
  - Blood pressure increased [Recovered/Resolved]
  - Cardiac failure [None]

NARRATIVE: CASE EVENT DATE: 2015
